FAERS Safety Report 16098458 (Version 1)
Quarter: 2019Q1

REPORT INFORMATION
  Report Type: Spontaneous
  Country: RO (occurrence: RO)
  Receive Date: 20190321
  Receipt Date: 20190321
  Transmission Date: 20190418
  Serious: Yes (Death, Hospitalization, Other)
  Sender: FDA-Public Use
  Company Number: RO-ABBVIE-19K-135-2711589-00

PATIENT
  Age: 69 Year
  Sex: Male
  Weight: 67 kg

DRUGS (1)
  1. HUMIRA [Suspect]
     Active Substance: ADALIMUMAB
     Indication: PSORIASIS
     Route: 058
     Dates: start: 200911, end: 20190226

REACTIONS (6)
  - Pain [Not Recovered/Not Resolved]
  - Renal colic [Not Recovered/Not Resolved]
  - Granuloma [Not Recovered/Not Resolved]
  - Iliac artery occlusion [Fatal]
  - Aneurysm [Not Recovered/Not Resolved]
  - Arteriosclerosis [Fatal]

NARRATIVE: CASE EVENT DATE: 201810
